FAERS Safety Report 24851019 (Version 1)
Quarter: 2025Q1

REPORT INFORMATION
  Report Type: Spontaneous
  Country: US (occurrence: None)
  Receive Date: 20250116
  Receipt Date: 20250116
  Transmission Date: 20250409
  Serious: Yes (Hospitalization)
  Sender: FDA-CTU
  Company Number: None

PATIENT
  Age: 69 Year
  Sex: Female

DRUGS (1)
  1. RINVOQ [Suspect]
     Active Substance: UPADACITINIB
     Indication: Rheumatoid arthritis
     Dosage: 15MG QD

REACTIONS (12)
  - Oral mucosal blistering [None]
  - Stomatitis [None]
  - Fall [None]
  - Hip fracture [None]
  - Haematoma [None]
  - Contusion [None]
  - Wound [None]
  - Wrist fracture [None]
  - Haematocrit decreased [None]
  - Loss of consciousness [None]
  - Neuropathy peripheral [None]
  - Sleep disorder [None]
